FAERS Safety Report 25188546 (Version 1)
Quarter: 2025Q2

REPORT INFORMATION
  Report Type: Spontaneous
  Country: US (occurrence: US)
  Receive Date: 20250411
  Receipt Date: 20250411
  Transmission Date: 20250716
  Serious: No
  Sender: TAKEDA
  Company Number: US-TAKEDA-2025TUS034025

PATIENT

DRUGS (2)
  1. VYVANSE [Suspect]
     Active Substance: LISDEXAMFETAMINE DIMESYLATE
     Indication: Product used for unknown indication
  2. LISDEXAMFETAMINE DIMESYLATE [Suspect]
     Active Substance: LISDEXAMFETAMINE DIMESYLATE
     Indication: Product used for unknown indication

REACTIONS (8)
  - Gastrointestinal disorder [Unknown]
  - Brain fog [Unknown]
  - Feeling abnormal [Unknown]
  - Phantosmia [Unknown]
  - Drug ineffective [Unknown]
  - Personality change [Unknown]
  - Mood swings [Unknown]
  - Depression [Unknown]
